FAERS Safety Report 11067509 (Version 14)
Quarter: 2015Q4

REPORT INFORMATION
  Report Type: Spontaneous
  Country: CA (occurrence: CA)
  Receive Date: 20150427
  Receipt Date: 20151210
  Transmission Date: 20160304
  Serious: Yes (Death, Life-Threatening, Hospitalization, Disabling)
  Sender: FDA-Public Use
  Company Number: CA-ROCHE-1569011

PATIENT
  Age: 69 Year
  Sex: Female

DRUGS (6)
  1. XOLAIR [Suspect]
     Active Substance: OMALIZUMAB
     Route: 058
     Dates: start: 20141111
  2. XOLAIR [Suspect]
     Active Substance: OMALIZUMAB
     Route: 058
     Dates: start: 20151103
  3. XOLAIR [Suspect]
     Active Substance: OMALIZUMAB
     Indication: ASTHMA
     Route: 058
     Dates: start: 20140722
  4. XOLAIR [Suspect]
     Active Substance: OMALIZUMAB
     Route: 058
     Dates: start: 20150922
  5. XOLAIR [Suspect]
     Active Substance: OMALIZUMAB
     Route: 058
     Dates: start: 20151117
  6. XOLAIR [Suspect]
     Active Substance: OMALIZUMAB
     Route: 058
     Dates: start: 20141125

REACTIONS (18)
  - Respiratory disorder [Unknown]
  - Gait disturbance [Unknown]
  - Parainfluenzae virus infection [Unknown]
  - Dysphonia [Unknown]
  - Drug ineffective [Unknown]
  - Respiratory failure [Recovered/Resolved]
  - Crepitations [Unknown]
  - Dysgraphia [Recovering/Resolving]
  - Injection site pain [Unknown]
  - Asthma [Unknown]
  - Pulmonary embolism [Fatal]
  - Wheezing [Unknown]
  - Middle insomnia [Unknown]
  - Respiratory tract congestion [Unknown]
  - Chest discomfort [Unknown]
  - Malaise [Unknown]
  - Asthenia [Unknown]
  - Lower respiratory tract infection [Unknown]

NARRATIVE: CASE EVENT DATE: 20141111
